FAERS Safety Report 24890114 (Version 1)
Quarter: 2025Q1

REPORT INFORMATION
  Report Type: Spontaneous
  Country: US (occurrence: US)
  Receive Date: 20250127
  Receipt Date: 20250127
  Transmission Date: 20250408
  Serious: No
  Sender: UPSHER SMITH LABORATORIES
  Company Number: US-UPSHER-SMITH LABORATORIES, LLC-2024USL00151

PATIENT
  Sex: Female

DRUGS (1)
  1. ISOTRETINOIN [Suspect]
     Active Substance: ISOTRETINOIN
     Indication: Product used for unknown indication

REACTIONS (7)
  - Acne [Recovering/Resolving]
  - Hypertrophic scar [Unknown]
  - Keloid scar [Unknown]
  - Cheilitis [Unknown]
  - Xerosis [Unknown]
  - Headache [Unknown]
  - Myalgia [Unknown]
